FAERS Safety Report 5351392-0 (Version None)
Quarter: 2007Q2

REPORT INFORMATION
  Report Type: 
  Country: None (occurrence: None)
  Receive Date: 20070608
  Receipt Date: 20070528
  Transmission Date: 20071010
  Serious: Yes (Other)
  Sender: FDA-Public Use
  Company Number: JP-PFIZER INC-2007045617

PATIENT
  Age: 88 Year
  Sex: Male

DRUGS (1)
  1. ZYVOX [Suspect]
     Dosage: DAILY DOSE:1200MG
     Route: 042

REACTIONS (2)
  - ELECTROCARDIOGRAM QT PROLONGED [None]
  - NAUSEA [None]
